FAERS Safety Report 10072286 (Version 2)
Quarter: 2014Q2

REPORT INFORMATION
  Report Type: Spontaneous
  Country: IT (occurrence: IT)
  Receive Date: 20140411
  Receipt Date: 20140416
  Transmission Date: 20141212
  Serious: Yes (Other)
  Sender: FDA-Public Use
  Company Number: IT-ACCORD-022993

PATIENT
  Age: 64 Year
  Sex: Male
  Weight: 72 kg

DRUGS (3)
  1. FLUOROURACIL [Suspect]
     Indication: COLON CANCER METASTATIC
     Dosage: THERAPY DURATION: 28-OCT-2013 TO 18-JAN-2014.
     Route: 041
     Dates: start: 20131028
  2. OXALIPLATIN [Suspect]
     Indication: COLON CANCER METASTATIC
     Dosage: THERAPY DURATION: 28-OCT-2013 TO 18-JAN-2014.
     Route: 042
     Dates: start: 20131028
  3. AMIODARONE [Concomitant]
     Indication: SUPRAVENTRICULAR EXTRASYSTOLES
     Route: 048

REACTIONS (1)
  - Paraesthesia [Unknown]
